FAERS Safety Report 9807735 (Version 1)
Quarter: 2014Q1

REPORT INFORMATION
  Report Type: Spontaneous
  Country: US (occurrence: US)
  Receive Date: 20140110
  Receipt Date: 20140110
  Transmission Date: 20141002
  Serious: No
  Sender: FDA-Public Use
  Company Number: US-BAYER-2014-004425

PATIENT
  Age: 54 Year
  Sex: Female
  Weight: 81.63 kg

DRUGS (2)
  1. ALEVE GELCAPS [Suspect]
     Indication: ARTHRITIS
     Dosage: 2 DF, QD
     Route: 048
  2. ONE A DAY WOMEN^S 50+ HEALTHY ADVANTAGE [Concomitant]

REACTIONS (2)
  - Incorrect drug administration duration [None]
  - Expired drug administered [None]
